FAERS Safety Report 12142068 (Version 1)
Quarter: 2016Q1

REPORT INFORMATION
  Report Type: Spontaneous
  Country: DK (occurrence: DK)
  Receive Date: 20160303
  Receipt Date: 20160303
  Transmission Date: 20160526
  Serious: Yes (Hospitalization)
  Sender: FDA-Public Use
  Company Number: DK-BAYER-2016-036779

PATIENT
  Age: 82 Year
  Sex: Male

DRUGS (8)
  1. ODRIK [Concomitant]
     Active Substance: TRANDOLAPRIL
     Indication: HYPERTENSION
  2. SIMVASTATIN. [Concomitant]
     Active Substance: SIMVASTATIN
     Indication: HYPERCHOLESTEROLAEMIA
  3. HJERTEMAGNYL [Concomitant]
     Active Substance: ASPIRIN\MAGNESIUM OXIDE
     Indication: THROMBOSIS PROPHYLAXIS
  4. XOFIGO [Suspect]
     Active Substance: RADIUM RA-223 DICHLORIDE
     Indication: PROSTATE CANCER METASTATIC
     Dosage: 3.5 ML, Q4WK
     Route: 042
     Dates: start: 20150828, end: 20151213
  5. PINEX [Concomitant]
     Active Substance: ACETAMINOPHEN
     Indication: PAIN
  6. BICALUTAMIDE. [Concomitant]
     Active Substance: BICALUTAMIDE
     Indication: PROSTATE CANCER
  7. PANTOPRAZOLE [Concomitant]
     Active Substance: PANTOPRAZOLE SODIUM
     Indication: GASTROOESOPHAGEAL REFLUX DISEASE
  8. SELOZOK [Concomitant]
     Active Substance: METOPROLOL SUCCINATE
     Indication: HYPERTENSION

REACTIONS (7)
  - Enterococcal infection [Unknown]
  - Gastrointestinal inflammation [Unknown]
  - Diarrhoea haemorrhagic [Recovered/Resolved]
  - Large intestinal ulcer haemorrhage [Recovered/Resolved]
  - Rectal ulcer haemorrhage [Recovered/Resolved]
  - White blood cell count increased [Unknown]
  - C-reactive protein increased [Unknown]

NARRATIVE: CASE EVENT DATE: 201512
